FAERS Safety Report 5844338-X (Version None)
Quarter: 2008Q3

REPORT INFORMATION
  Report Type: 
  Country: None (occurrence: None)
  Receive Date: 20080731
  Receipt Date: 20080527
  Transmission Date: 20090109
  Serious: No
  Sender: FDA-Public Use
  Company Number: US200804007062

PATIENT
  Age: 80 Year
  Sex: Female

DRUGS (14)
  1. BYETTA [Suspect]
     Indication: TYPE 2 DIABETES MELLITUS
     Dosage: 10 UG, 2/D, SUBCUTANEOUS
     Route: 058
     Dates: start: 20060101
  2. EXENATIDE PEN, DISPOSABLE DEVICE (EXENATIDE PEN) PEN, DISPOSABLE [Concomitant]
  3. LANTUS [Concomitant]
  4. ACTONEL [Concomitant]
  5. ACTOS [Concomitant]
  6. VYTORIN [Concomitant]
  7. GLYBURIDE [Concomitant]
  8. FEMARA [Concomitant]
  9. NAMENDA [Concomitant]
  10. FERROUS SULFATE TAB [Concomitant]
  11. ASPIRIN [Concomitant]
  12. ICAPS (MINERALS NOS, VITAMINS NOS) [Concomitant]
  13. CITRACAL (CALCIUM CITRATE) [Concomitant]
  14. THERAGRAN-M (MINERALS NOS, VITAMINS NOS) [Concomitant]

REACTIONS (3)
  - FALL [None]
  - HUMERUS FRACTURE [None]
  - MEMORY IMPAIRMENT [None]
